FAERS Safety Report 13056624 (Version 1)
Quarter: 2016Q4

REPORT INFORMATION
  Report Type: Spontaneous
  Country: US (occurrence: US)
  Receive Date: 20161222
  Receipt Date: 20161222
  Transmission Date: 20170207
  Serious: Yes (Hospitalization)
  Sender: FDA-Public Use
  Company Number: US-ELI_LILLY_AND_COMPANY-US201612005525

PATIENT
  Age: 78 Year
  Sex: Male

DRUGS (11)
  1. APO NITROGLYCERIN [Concomitant]
     Indication: LUNG DISORDER
  2. ADCO-POTASSIUM CHLORIDE [Concomitant]
  3. HUMULIN N [Suspect]
     Active Substance: INSULIN HUMAN
     Indication: TYPE 2 DIABETES MELLITUS
     Dosage: 30 U, EACH MORNING
     Route: 065
     Dates: start: 20161110, end: 20161207
  4. HUMULIN R [Suspect]
     Active Substance: INSULIN HUMAN
     Dosage: UNK UNK, UNKNOWN
     Route: 065
     Dates: start: 20161110
  5. HUMULIN 70/30 [Suspect]
     Active Substance: INSULIN HUMAN
     Indication: TYPE 2 DIABETES MELLITUS
     Dosage: UNK, UNKNOWN
     Route: 065
     Dates: start: 201512, end: 20160713
  6. FLOMAX [Concomitant]
     Active Substance: TAMSULOSIN HYDROCHLORIDE
     Dosage: 1 DF, EACH MORNING
     Route: 065
  7. ABTEI MAGNESIUM [Concomitant]
  8. LANTUS [Suspect]
     Active Substance: INSULIN GLARGINE
     Indication: PRODUCT USED FOR UNKNOWN INDICATION
     Dosage: 12 U, QD
     Route: 065
     Dates: start: 20161206
  9. HUMULIN R [Suspect]
     Active Substance: INSULIN HUMAN
     Indication: TYPE 2 DIABETES MELLITUS
     Dosage: UNK
     Dates: start: 201512, end: 20160713
  10. HUMULIN N [Suspect]
     Active Substance: INSULIN HUMAN
     Dosage: 10 U, EACH EVENING
     Route: 065
     Dates: start: 20161110, end: 20161207
  11. GLIMEPIRIDE. [Suspect]
     Active Substance: GLIMEPIRIDE
     Indication: PRODUCT USED FOR UNKNOWN INDICATION
     Dosage: UNK, UNKNOWN
     Route: 065
     Dates: start: 20160713, end: 20161110

REACTIONS (13)
  - Myocardial infarction [Not Recovered/Not Resolved]
  - Vision blurred [Not Recovered/Not Resolved]
  - Constipation [Recovered/Resolved]
  - Lung disorder [Recovered/Resolved]
  - Renal pain [Recovered/Resolved]
  - Chest pain [Recovered/Resolved]
  - Lung disorder [Not Recovered/Not Resolved]
  - Visual impairment [Recovered/Resolved]
  - Blood glucose decreased [Recovered/Resolved]
  - Hyperhidrosis [Recovered/Resolved]
  - Chest pain [Not Recovered/Not Resolved]
  - Diabetic neuropathy [Not Recovered/Not Resolved]
  - Blood glucose increased [Not Recovered/Not Resolved]

NARRATIVE: CASE EVENT DATE: 20161205
